FAERS Safety Report 25733826 (Version 1)
Quarter: 2025Q3

REPORT INFORMATION
  Report Type: Spontaneous
  Country: CN (occurrence: CN)
  Receive Date: 20250828
  Receipt Date: 20250828
  Transmission Date: 20251020
  Serious: Yes (Other)
  Sender: BAXTER
  Company Number: None

PATIENT
  Age: 67 Year
  Sex: Male
  Weight: 75 kg

DRUGS (2)
  1. CYCLOPHOSPHAMIDE [Suspect]
     Active Substance: CYCLOPHOSPHAMIDE
     Indication: Glomerulonephritis membranous
     Dosage: 0.2 MG, EVERY 2 DY (EVERY OTHER DAY)+ SODIUM CHLORIDE INJECTION 100 ML
     Route: 041
     Dates: start: 20250707, end: 20250713
  2. SODIUM CHLORIDE [Suspect]
     Active Substance: SODIUM CHLORIDE
     Dosage: 100 ML, EVERY 2 DY+ CYCLOPHOSPHAMIDE FOR INJECTION 0.2 G
     Route: 041
     Dates: start: 20250707, end: 20250713

REACTIONS (3)
  - Myelosuppression [Unknown]
  - White blood cell count decreased [Recovering/Resolving]
  - Neutrophil count decreased [Recovering/Resolving]

NARRATIVE: CASE EVENT DATE: 20250714
